FAERS Safety Report 10480102 (Version 1)
Quarter: 2014Q3

REPORT INFORMATION
  Report Type: Spontaneous
  Country: US (occurrence: None)
  Receive Date: 20140926
  Receipt Date: 20140926
  Transmission Date: 20150326
  Serious: No
  Sender: FDA-Public Use
  Company Number: None

PATIENT
  Age: 78 Year
  Sex: Female

DRUGS (1)
  1. NEXAVAR [Suspect]
     Active Substance: SORAFENIB
     Indication: COLON CANCER
     Route: 048
     Dates: start: 20140711

REACTIONS (2)
  - Tongue blistering [None]
  - Glossodynia [None]

NARRATIVE: CASE EVENT DATE: 20140807
